FAERS Safety Report 10910246 (Version 1)
Quarter: 2015Q1

REPORT INFORMATION
  Report Type: Spontaneous
  Country: US (occurrence: US)
  Receive Date: 20150312
  Receipt Date: 20150312
  Transmission Date: 20150721
  Serious: No
  Sender: FDA-Public Use
  Company Number: US-SA-2014SA116914

PATIENT
  Age: 72 Year
  Sex: Male

DRUGS (1)
  1. NASACORT ALLERGY 24HR [Suspect]
     Active Substance: TRIAMCINOLONE ACETONIDE
     Indication: HYPERSENSITIVITY
     Dosage: TAKEN FROM: 4 MONTHS AGO?DOSE: 2 SPRAYS/NOSTRIL 2-3 TIMES/DAY
     Route: 045

REACTIONS (3)
  - Asthenia [Unknown]
  - Drug effect decreased [Unknown]
  - Extra dose administered [Unknown]
